FAERS Safety Report 7942139-X (Version None)
Quarter: 2011Q4

REPORT INFORMATION
  Report Type: 
  Country: None (occurrence: None)
  Receive Date: 20111123
  Receipt Date: 20111123
  Transmission Date: 20120403
  Serious: Yes (Hospitalization)
  Sender: FDA-Public Use
  Company Number: None

PATIENT
  Age: 75 Year
  Sex: Male

DRUGS (1)
  1. PRADAXA [Suspect]
     Dosage: 75 MG 2 TIMES DAY EVERY DAY
     Dates: start: 20110524, end: 20111026

REACTIONS (7)
  - FATIGUE [None]
  - HAEMOPTYSIS [None]
  - DYSPNOEA [None]
  - RENAL FAILURE ACUTE [None]
  - PULMONARY HAEMORRHAGE [None]
  - VASCULITIS [None]
  - PNEUMONIA [None]
